FAERS Safety Report 21823713 (Version 2)
Quarter: 2023Q2

REPORT INFORMATION
  Report Type: Spontaneous
  Country: US (occurrence: US)
  Receive Date: 20230105
  Receipt Date: 20230530
  Transmission Date: 20230721
  Serious: No
  Sender: FDA-Public Use
  Company Number: US-PFIZER INC-PV202300000501

PATIENT
  Age: 72 Year
  Sex: Female

DRUGS (1)
  1. IBRANCE [Suspect]
     Active Substance: PALBOCICLIB
     Indication: Anaemia
     Dosage: 125 MG, CYCLIC  (1 P.O (PER ORAL) Q. DAY (ONCE A DAY)  FOR 3 WEEKS FOLLOWED BY A 7 DAY BREAK)
     Route: 048

REACTIONS (2)
  - Tumour marker increased [Unknown]
  - Off label use [Unknown]
